FAERS Safety Report 6602133-8 (Version None)
Quarter: 2010Q1

REPORT INFORMATION
  Report Type: 
  Country: None (occurrence: None)
  Receive Date: 20100225
  Receipt Date: 20100219
  Transmission Date: 20100710
  Serious: Yes (Life-Threatening, Hospitalization, Other)
  Sender: FDA-Public Use
  Company Number: PHHY2010FR10116

PATIENT
  Sex: Female

DRUGS (6)
  1. LEPONEX [Suspect]
     Indication: SCHIZOPHRENIA
     Dosage: 175 MG MORNING AND 200 MG EVENING
     Route: 048
     Dates: start: 19970620, end: 20100110
  2. TERCIAN [Concomitant]
     Dosage: 150 MG, UNK
  3. LOVENOX [Concomitant]
     Dosage: UNK
     Dates: start: 20100123
  4. TEMESTA [Concomitant]
     Dosage: 2.5 MG, TID
  5. DEPAKINE CHRONO [Concomitant]
     Dosage: 250 MG, QD
  6. IMPLANON [Concomitant]
     Dosage: UNK
     Dates: start: 20090528

REACTIONS (26)
  - ACUTE RESPIRATORY DISTRESS SYNDROME [None]
  - ALTERED STATE OF CONSCIOUSNESS [None]
  - BLOOD CREATINE PHOSPHOKINASE INCREASED [None]
  - CATATONIA [None]
  - COMA SCALE ABNORMAL [None]
  - DEHYDRATION [None]
  - EATING DISORDER [None]
  - GENE MUTATION IDENTIFICATION TEST POSITIVE [None]
  - HAEMOCONCENTRATION [None]
  - HALLUCINATION [None]
  - HYPERKALAEMIA [None]
  - HYPERNATRAEMIA [None]
  - LUNG DISORDER [None]
  - MUTISM [None]
  - NEUROLEPTIC MALIGNANT SYNDROME [None]
  - PNEUMONIA ASPIRATION [None]
  - PYRAMIDAL TRACT SYNDROME [None]
  - PYREXIA [None]
  - RENAL FAILURE [None]
  - STAPHYLOCOCCAL INFECTION [None]
  - TACHYCARDIA [None]
  - THROMBOPHLEBITIS [None]
  - UNEQUAL LIMB LENGTH [None]
  - VENA CAVA THROMBOSIS [None]
  - VENOUS THROMBOSIS [None]
  - WHITE BLOOD CELL COUNT INCREASED [None]
